FAERS Safety Report 13953357 (Version 1)
Quarter: 2017Q3

REPORT INFORMATION
  Report Type: Spontaneous
  Country: US (occurrence: None)
  Receive Date: 20170908
  Receipt Date: 20170908
  Transmission Date: 20171128
  Serious: No
  Sender: FDA-Public Use
  Company Number: None

PATIENT
  Age: 41 Year
  Sex: Female

DRUGS (1)
  1. HUMIRA [Suspect]
     Active Substance: ADALIMUMAB
     Indication: CROHN^S DISEASE
     Route: 058
     Dates: end: 20170907

REACTIONS (4)
  - Injection site ulcer [None]
  - Furuncle [None]
  - Ulcer [None]
  - Mouth ulceration [None]

NARRATIVE: CASE EVENT DATE: 20170907
